FAERS Safety Report 7705435-7 (Version None)
Quarter: 2011Q3

REPORT INFORMATION
  Report Type: 
  Country: None (occurrence: None)
  Receive Date: 20110824
  Receipt Date: 20110809
  Transmission Date: 20111222
  Serious: Yes (Other)
  Sender: FDA-Public Use
  Company Number: US-UCBSA-031077

PATIENT
  Sex: Male
  Weight: 52.61 kg

DRUGS (5)
  1. VIMPAT [Suspect]
     Indication: CONVULSION
     Dates: start: 20090501
  2. LEVOTHYROXINE SODIUM [Concomitant]
     Indication: THYROID DISORDER
     Dates: start: 20020101
  3. PRAVASTATIN [Concomitant]
     Indication: BLOOD CHOLESTEROL
     Dates: start: 20040101
  4. ALLOPURINOL OPTIONAL [Concomitant]
     Indication: GOUT
     Dates: start: 20090101
  5. LAMICTAL [Concomitant]
     Indication: PANIC ATTACK

REACTIONS (3)
  - RENAL IMPAIRMENT [None]
  - RASH [None]
  - SOMNOLENCE [None]
